FAERS Safety Report 8448320-8 (Version None)
Quarter: 2012Q2

REPORT INFORMATION
  Report Type: 
  Country: None (occurrence: None)
  Receive Date: 20120619
  Receipt Date: 20120613
  Transmission Date: 20120825
  Serious: No
  Sender: FDA-Public Use
  Company Number: US-PFIZER INC-2012143114

PATIENT
  Sex: Female

DRUGS (4)
  1. CELEBREX [Suspect]
     Indication: ARTHRITIS
     Dosage: UNK
     Route: 048
  2. LYRICA [Suspect]
     Dosage: UNK, 1X/DAY
     Route: 048
  3. ARTHROTEC [Suspect]
     Indication: ARTHRITIS
     Dosage: UNK
  4. LYRICA [Suspect]
     Dosage: TWO CAPSULES OF 75MG IN THE EVENING AND ONE CAPSULE OF 75MG WITH ONE CAPSULE OF 50MG IN THE MORNING
     Route: 048

REACTIONS (1)
  - ARTHRITIS [None]
